FAERS Safety Report 11861649 (Version 2)
Quarter: 2016Q1

REPORT INFORMATION
  Report Type: Report from Study
  Country: US (occurrence: US)
  Receive Date: 20151222
  Receipt Date: 20160229
  Transmission Date: 20160526
  Serious: Yes (Hospitalization, Other)
  Sender: FDA-Public Use
  Company Number: US-BIOGEN-2012BI051857

PATIENT
  Age: 37 Year
  Sex: Male

DRUGS (2)
  1. AVONEX [Suspect]
     Active Substance: INTERFERON BETA-1A
     Route: 030
     Dates: start: 201506
  2. AVONEX [Suspect]
     Active Substance: INTERFERON BETA-1A
     Indication: MULTIPLE SCLEROSIS
     Route: 030
     Dates: start: 20040907, end: 201506

REACTIONS (42)
  - Cardiac failure congestive [Recovered/Resolved]
  - Hypoaesthesia [Recovered/Resolved]
  - Deafness [Not Recovered/Not Resolved]
  - Loss of consciousness [Unknown]
  - Nasal congestion [Not Recovered/Not Resolved]
  - Influenza like illness [Not Recovered/Not Resolved]
  - Mobility decreased [Not Recovered/Not Resolved]
  - Hypophagia [Not Recovered/Not Resolved]
  - Pain [Not Recovered/Not Resolved]
  - Rhinorrhoea [Not Recovered/Not Resolved]
  - Muscle spasms [Recovered/Resolved]
  - Arthralgia [Unknown]
  - Fatigue [Not Recovered/Not Resolved]
  - Hip arthroplasty [Recovered/Resolved]
  - Hypertension [Not Recovered/Not Resolved]
  - Headache [Not Recovered/Not Resolved]
  - Hypersomnia [Not Recovered/Not Resolved]
  - Spinal column stenosis [Not Recovered/Not Resolved]
  - Pneumonia bacterial [Recovered/Resolved]
  - Hallucination [Recovered/Resolved]
  - Fear [Unknown]
  - Memory impairment [Not Recovered/Not Resolved]
  - Discomfort [Not Recovered/Not Resolved]
  - Malaise [Not Recovered/Not Resolved]
  - Photosensitivity reaction [Not Recovered/Not Resolved]
  - Gait disturbance [Not Recovered/Not Resolved]
  - General physical health deterioration [Not Recovered/Not Resolved]
  - Feeling abnormal [Not Recovered/Not Resolved]
  - Road traffic accident [Recovered/Resolved]
  - Crohn^s disease [Not Recovered/Not Resolved]
  - Eye pain [Recovered/Resolved]
  - Muscle tightness [Not Recovered/Not Resolved]
  - Small intestine operation [Recovered/Resolved]
  - Intervertebral disc protrusion [Recovered/Resolved]
  - Frustration tolerance decreased [Unknown]
  - Spinal fusion surgery [Unknown]
  - Chills [Not Recovered/Not Resolved]
  - Cervical vertebral fracture [Recovered/Resolved]
  - Catheterisation cardiac [Unknown]
  - Anger [Unknown]
  - Poor quality sleep [Not Recovered/Not Resolved]
  - Paraesthesia [Not Recovered/Not Resolved]

NARRATIVE: CASE EVENT DATE: 20040911
